FAERS Safety Report 11117032 (Version 1)
Quarter: 2015Q2

REPORT INFORMATION
  Report Type: Spontaneous
  Country: US (occurrence: US)
  Receive Date: 20150515
  Receipt Date: 20150515
  Transmission Date: 20150821
  Serious: No
  Sender: FDA-Public Use
  Company Number: US-PFIZER INC-2015161711

PATIENT
  Age: 74 Year
  Sex: Female

DRUGS (4)
  1. ALEVE [Suspect]
     Active Substance: NAPROXEN SODIUM
  2. IBUPROFEN. [Suspect]
     Active Substance: IBUPROFEN
  3. METHOTREXATE SODIUM. [Suspect]
     Active Substance: METHOTREXATE SODIUM
  4. ASA [Suspect]
     Active Substance: ASPIRIN

REACTIONS (1)
  - Drug hypersensitivity [Not Recovered/Not Resolved]
